FAERS Safety Report 12408782 (Version 1)
Quarter: 2016Q2

REPORT INFORMATION
  Report Type: Report from Study
  Country: DE (occurrence: DE)
  Receive Date: 20160526
  Receipt Date: 20160526
  Transmission Date: 20160815
  Serious: Yes (Death, Hospitalization)
  Sender: FDA-Public Use
  Company Number: DE-AMGEN-DEUSP2016066204

PATIENT
  Age: 71 Year
  Sex: Male
  Weight: 70 kg

DRUGS (4)
  1. CALCIUMFOLINAT [Concomitant]
     Active Substance: LEUCOVORIN CALCIUM
     Indication: COLORECTAL CANCER METASTATIC
     Dosage: 400 MG/M2, 15 DAYS
     Dates: start: 20150806
  2. OXALIPLATIN. [Concomitant]
     Active Substance: OXALIPLATIN
     Indication: COLORECTAL CANCER METASTATIC
     Dosage: 85 MG/M2, 15 DAYS
     Dates: start: 20150806
  3. VECTIBIX [Suspect]
     Active Substance: PANITUMUMAB
     Indication: METASTASES TO LIVER
     Dosage: 6 MG/KG, EVERY 2 WEEK
     Route: 042
     Dates: start: 20150806, end: 20151130
  4. 5-FU                               /00098801/ [Concomitant]
     Active Substance: FLUOROURACIL
     Indication: COLORECTAL CANCER METASTATIC
     Dosage: 240 MG/M2, 15 DAYS
     Dates: start: 20150806

REACTIONS (1)
  - Pneumonitis chemical [Fatal]

NARRATIVE: CASE EVENT DATE: 20151228
